FAERS Safety Report 11134446 (Version 3)
Quarter: 2015Q2

REPORT INFORMATION
  Report Type: Report from Study
  Country: DE (occurrence: DE)
  Receive Date: 20150525
  Receipt Date: 20150626
  Transmission Date: 20150821
  Serious: Yes (Life-Threatening, Hospitalization)
  Sender: FDA-Public Use
  Company Number: DE-ABBVIE-15K-062-1396429-00

PATIENT
  Age: 54 Year
  Sex: Female
  Weight: 78 kg

DRUGS (2)
  1. HUMIRA [Suspect]
     Active Substance: ADALIMUMAB
     Indication: PRODUCT USED FOR UNKNOWN INDICATION
     Route: 058
     Dates: start: 201204
  2. DAIVOBET [Concomitant]
     Active Substance: BETAMETHASONE DIPROPIONATE\CALCIPOTRIENE
     Indication: PRODUCT USED FOR UNKNOWN INDICATION

REACTIONS (14)
  - Paranasal sinus aplasia [Unknown]
  - Glycosylated haemoglobin increased [Unknown]
  - Blood sodium decreased [Recovered/Resolved]
  - Low density lipoprotein increased [Unknown]
  - Anterograde amnesia [Recovered/Resolved]
  - Transient global amnesia [Recovered/Resolved]
  - Blood cholesterol increased [Unknown]
  - High density lipoprotein decreased [Unknown]
  - Exostosis [Unknown]
  - Retrograde amnesia [Recovered/Resolved]
  - Headache [Recovered/Resolved]
  - Alanine aminotransferase increased [Unknown]
  - Gamma-glutamyltransferase increased [Unknown]
  - Vertigo [Recovered/Resolved]

NARRATIVE: CASE EVENT DATE: 20150521
